FAERS Safety Report 6867361-5 (Version None)
Quarter: 2010Q3

REPORT INFORMATION
  Report Type: 
  Country: None (occurrence: None)
  Receive Date: 20100722
  Receipt Date: 20100707
  Transmission Date: 20110219
  Serious: Yes (Other)
  Sender: FDA-Public Use
  Company Number: FR-GENENTECH-304393

PATIENT
  Sex: Female

DRUGS (4)
  1. LUCENTIS [Suspect]
     Indication: MACULAR DEGENERATION
     Dosage: UNK
     Route: 031
     Dates: start: 20070101
  2. LUCENTIS [Suspect]
     Dosage: UNK
     Route: 031
     Dates: start: 20080101
  3. LUCENTIS [Suspect]
     Dosage: UNK
     Route: 031
     Dates: start: 20100326
  4. LUCENTIS [Suspect]
     Dosage: UNK
     Route: 031
     Dates: start: 20100702

REACTIONS (2)
  - DRUG INEFFECTIVE [None]
  - MACULAR DEGENERATION [None]
